FAERS Safety Report 12057701 (Version 1)
Quarter: 2016Q1

REPORT INFORMATION
  Report Type: Spontaneous
  Country: US (occurrence: US)
  Receive Date: 20160209
  Receipt Date: 20160209
  Transmission Date: 20160526
  Serious: Yes (Life-Threatening, Hospitalization, Other)
  Sender: FDA-Public Use
  Company Number: US-KADMON PHARMACEUTICALS, LLC-KAD201601-000278

PATIENT
  Sex: Female

DRUGS (2)
  1. RIBASPHERE [Suspect]
     Active Substance: RIBAVIRIN
     Indication: HEPATITIS C
     Dosage: 3 TABLETS OF 200 MG; 2 TIMES A DAY (MORNING AND EVENING)
     Dates: start: 201510
  2. TECHNIVIE [Suspect]
     Active Substance: OMBITASVIR HEMINONAHYDRATE\PARITAPREVIR DIHYDRATE\RITONAVIR
     Indication: HEPATITIS C
     Dosage: (12.5/75/50 MG) 2 TABLETS EVERYDAY IN THE MORNING
     Dates: start: 201510

REACTIONS (16)
  - Apparent death [Unknown]
  - Pruritus [Recovered/Resolved]
  - Pneumonia [Unknown]
  - Hypertension [Unknown]
  - Decreased appetite [Recovered/Resolved]
  - Blood glucose decreased [Unknown]
  - Alopecia [Recovered/Resolved]
  - White blood cell count decreased [Unknown]
  - Arthropathy [Unknown]
  - Palpitations [Unknown]
  - Type 2 diabetes mellitus [Not Recovered/Not Resolved]
  - Weight decreased [Unknown]
  - Mood altered [Recovered/Resolved]
  - Malaise [Recovered/Resolved]
  - Psychotic disorder [Recovered/Resolved]
  - Blood potassium decreased [Not Recovered/Not Resolved]

NARRATIVE: CASE EVENT DATE: 201512
